FAERS Safety Report 11448475 (Version 2)
Quarter: 2015Q4

REPORT INFORMATION
  Report Type: Report from Study
  Country: US (occurrence: US)
  Receive Date: 20150902
  Receipt Date: 20151030
  Transmission Date: 20160304
  Serious: Yes (Life-Threatening)
  Sender: FDA-Public Use
  Company Number: US-TEVA-590492USA

PATIENT
  Age: 49 Year
  Sex: Female
  Weight: 84.08 kg

DRUGS (5)
  1. CELECOXIB;PLACEBO (CODE NOT BROKEN) [Suspect]
     Active Substance: CELECOXIB
     Indication: COLON CANCER
     Dosage: 400 MILLIGRAM DAILY;
     Route: 048
     Dates: start: 201502
  2. LEUCOVORIN. [Suspect]
     Active Substance: LEUCOVORIN
     Indication: ADENOCARCINOMA OF COLON
     Dosage: IV OVER 2 HOURS ON DAY 1
     Route: 042
     Dates: start: 20150126
  3. FLUOROURACIL. [Suspect]
     Active Substance: FLUOROURACIL
     Indication: COLON CANCER
     Dosage: 400 MG/M2 ON DAY 1, IV BOLUS
     Route: 040
     Dates: start: 20150126
  4. FLUOROURACIL. [Suspect]
     Active Substance: FLUOROURACIL
     Dosage: OVER 46-48 HOURS ON DAY 1
     Route: 042
  5. ELOXATIN [Suspect]
     Active Substance: OXALIPLATIN
     Indication: COLON CANCER
     Dosage: OVER 2 HOURS ON DAY 1
     Route: 042
     Dates: start: 20150126

REACTIONS (1)
  - Embolism [Recovering/Resolving]
